FAERS Safety Report 9292747 (Version 1)
Quarter: 2013Q2

REPORT INFORMATION
  Report Type: Spontaneous
  Country: FR (occurrence: FR)
  Receive Date: 20130516
  Receipt Date: 20130516
  Transmission Date: 20140414
  Serious: Yes (Other)
  Sender: FDA-Public Use
  Company Number: FR-JNJFOC-20130506141

PATIENT
  Age: 82 Year
  Sex: Male

DRUGS (6)
  1. XARELTO [Suspect]
     Indication: CEREBROVASCULAR ACCIDENT PROPHYLAXIS
     Route: 048
  2. XARELTO [Suspect]
     Indication: ATRIAL FIBRILLATION
     Route: 048
  3. KARDEGIC [Concomitant]
     Route: 065
  4. ALFUZOSIN [Concomitant]
     Route: 065
  5. NISIS [Concomitant]
     Route: 065
  6. PROCORALAN [Concomitant]
     Route: 065

REACTIONS (1)
  - Thrombocytopenia [Unknown]
